FAERS Safety Report 5563761-4 (Version None)
Quarter: 2007Q4

REPORT INFORMATION
  Report Type: 
  Country: None (occurrence: None)
  Receive Date: 20071217
  Receipt Date: 20070816
  Transmission Date: 20080405
  Serious: No
  Sender: FDA-Public Use
  Company Number: US-ASTRAZENECA-2007UW19797

PATIENT
  Sex: Female

DRUGS (1)
  1. CRESTOR [Suspect]
     Route: 048

REACTIONS (1)
  - ADVERSE DRUG REACTION [None]
